FAERS Safety Report 11298426 (Version 1)
Quarter: 2015Q3

REPORT INFORMATION
  Report Type: Spontaneous
  Country: US (occurrence: US)
  Receive Date: 20150722
  Receipt Date: 20150722
  Transmission Date: 20151125
  Serious: No
  Sender: FDA-Public Use
  Company Number: US-ELI_LILLY_AND_COMPANY-US201108003248

PATIENT
  Sex: Female
  Weight: 65.76 kg

DRUGS (5)
  1. SIMVASTATIN. [Concomitant]
     Active Substance: SIMVASTATIN
     Dosage: 80 MG, QD
  2. ATENOLOL. [Concomitant]
     Active Substance: ATENOLOL
     Dosage: 25 MG, QD
  3. LISINOPRIL. [Concomitant]
     Active Substance: LISINOPRIL
     Dosage: 5 MG, QD
  4. EFFIENT [Suspect]
     Active Substance: PRASUGREL HYDROCHLORIDE
     Indication: STENT PLACEMENT
     Dosage: 10 MG, QD
     Dates: start: 20110528
  5. ASPIRIN. [Concomitant]
     Active Substance: ASPIRIN
     Dosage: 2 DF, 81 MG, UNKNOWN

REACTIONS (3)
  - Haematoma [Recovered/Resolved]
  - Contusion [Not Recovered/Not Resolved]
  - Faeces discoloured [Not Recovered/Not Resolved]
